FAERS Safety Report 25519733 (Version 1)
Quarter: 2025Q3

REPORT INFORMATION
  Report Type: Spontaneous
  Country: US (occurrence: US)
  Receive Date: 20250704
  Receipt Date: 20250704
  Transmission Date: 20251020
  Serious: No
  Sender: PFIZER
  Company Number: US-PFIZER INC-202100965458

PATIENT
  Age: 62 Year
  Sex: Female

DRUGS (3)
  1. XALKORI [Suspect]
     Active Substance: CRIZOTINIB
     Indication: Lung carcinoma cell type unspecified stage 0
     Dosage: 250 MG, 1X/DAY
     Route: 048
     Dates: start: 20210129
  2. XALKORI [Suspect]
     Active Substance: CRIZOTINIB
     Indication: Metastases to bone
     Dosage: 250 MG, 1X/DAY
     Route: 048
     Dates: start: 20210616
  3. XALKORI [Suspect]
     Active Substance: CRIZOTINIB
     Dosage: 250 MG, 1X/DAY
     Route: 048
     Dates: start: 20210728

REACTIONS (2)
  - Off label use [Unknown]
  - Hypertransaminasaemia [Unknown]

NARRATIVE: CASE EVENT DATE: 20210129
